FAERS Safety Report 5130758-8 (Version None)
Quarter: 2006Q4

REPORT INFORMATION
  Report Type: 
  Country: None (occurrence: None)
  Receive Date: 20061018
  Receipt Date: 20061018
  Transmission Date: 20070319
  Serious: Yes (Disabling, Other)
  Sender: FDA-Public Use
  Company Number: None

PATIENT
  Sex: Female
  Weight: 68.0396 kg

DRUGS (8)
  1. CYMBALTA [Suspect]
     Indication: BACK PAIN
     Dosage: 30MG  CAN'T REMEMBER   ORAL;  60 MCG   1-AT NIGHT
     Route: 048
     Dates: start: 20050505, end: 20050816
  2. CYMBALTA [Suspect]
     Indication: FIBROMYALGIA
     Dosage: 30MG  CAN'T REMEMBER   ORAL;  60 MCG   1-AT NIGHT
     Route: 048
     Dates: start: 20050505, end: 20050816
  3. CYMBALTA [Suspect]
     Indication: INTERVERTEBRAL DISC DISORDER
     Dosage: 30MG  CAN'T REMEMBER   ORAL;  60 MCG   1-AT NIGHT
     Route: 048
     Dates: start: 20050505, end: 20050816
  4. AMTRIPYLINE [Concomitant]
  5. ZOLOFT [Concomitant]
  6. BEXTRA [Concomitant]
  7. FLEXERAL [Concomitant]
  8. WELLBUTRIN [Concomitant]

REACTIONS (7)
  - CONDITION AGGRAVATED [None]
  - DEPRESSION [None]
  - LIVER FUNCTION TEST ABNORMAL [None]
  - MULTIPLE SCLEROSIS [None]
  - NEUROMYOPATHY [None]
  - SKIN ODOUR ABNORMAL [None]
  - TREMOR [None]
